FAERS Safety Report 9431782 (Version 1)
Quarter: 2013Q3

REPORT INFORMATION
  Report Type: Spontaneous
  Country: US (occurrence: None)
  Receive Date: 20130726
  Receipt Date: 20130726
  Transmission Date: 20140515
  Serious: Yes (Hospitalization)
  Sender: FDA-Public Use
  Company Number: FK201302422

PATIENT
  Age: 14 Year
  Sex: Male

DRUGS (1)
  1. FLUDARABINE [Suspect]
     Indication: ACUTE LYMPHOCYTIC LEUKAEMIA

REACTIONS (8)
  - Leukoencephalopathy [None]
  - Sepsis [None]
  - Anxiety [None]
  - Affect lability [None]
  - General physical health deterioration [None]
  - Dyspnoea [None]
  - Apallic syndrome [None]
  - Graft versus host disease [None]
